FAERS Safety Report 7421844-8 (Version None)
Quarter: 2011Q2

REPORT INFORMATION
  Report Type: 
  Country: None (occurrence: None)
  Receive Date: 20110418
  Receipt Date: 20110414
  Transmission Date: 20111010
  Serious: Yes (Other)
  Sender: FDA-Public Use
  Company Number: AU-PFIZER INC-2011046183

PATIENT
  Age: 40 Year
  Sex: Male
  Weight: 84.2 kg

DRUGS (5)
  1. LYRICA [Suspect]
     Indication: RADICULOPATHY
  2. LYRICA [Suspect]
     Indication: NEURALGIA
     Dosage: 75 MG, 1X/DAY
     Route: 048
     Dates: start: 20110213, end: 20110216
  3. LYRICA [Suspect]
     Indication: BACK PAIN
  4. LYRICA [Suspect]
     Indication: NECK PAIN
  5. ATACAND [Concomitant]
     Indication: HYPERTENSION
     Dosage: 32 MG, 1X/DAY
     Route: 048

REACTIONS (3)
  - DEPRESSED MOOD [None]
  - EMOTIONAL DISORDER [None]
  - SUICIDAL IDEATION [None]
